FAERS Safety Report 8325390-9 (Version None)
Quarter: 2012Q2

REPORT INFORMATION
  Report Type: 
  Country: None (occurrence: None)
  Receive Date: 20120501
  Receipt Date: 20100419
  Transmission Date: 20120825
  Serious: No
  Sender: FDA-Public Use
  Company Number: US-TEVA-2010002282

PATIENT
  Sex: Female
  Weight: 90.8 kg

DRUGS (13)
  1. SYNTHROID [Concomitant]
  2. ZANAFLEX [Concomitant]
  3. FISH OIL [Concomitant]
  4. NUVIGIL [Suspect]
     Indication: MULTIPLE SCLEROSIS
     Dosage: 250 MILLIGRAM;
     Route: 048
     Dates: start: 20100322
  5. PROZAC [Concomitant]
  6. CLONAZEPAM [Concomitant]
  7. BUPROPION HCL [Concomitant]
  8. AVONEX [Concomitant]
  9. LORTAB [Concomitant]
  10. BUSPIRONE HCL [Concomitant]
  11. AMITRIPTYLINE HCL [Concomitant]
  12. NORCO [Concomitant]
  13. CALCIUM WITH VITAMIN D [Concomitant]

REACTIONS (1)
  - FATIGUE [None]
